FAERS Safety Report 17628757 (Version 8)
Quarter: 2022Q2

REPORT INFORMATION
  Report Type: Spontaneous
  Country: GB (occurrence: GB)
  Receive Date: 20200406
  Receipt Date: 20220503
  Transmission Date: 20220721
  Serious: Yes (Hospitalization, Other)
  Sender: FDA-Public Use
  Company Number: GB-DRREDDYS-GER/UKI/11/0017389

PATIENT
  Age: 21 Year
  Sex: Female

DRUGS (42)
  1. PREGABALIN [Suspect]
     Active Substance: PREGABALIN
     Indication: Product used for unknown indication
     Route: 048
  2. TRAMADOL [Suspect]
     Active Substance: TRAMADOL
     Indication: Abdominal pain
     Route: 048
     Dates: start: 200904, end: 200909
  3. TRAMADOL [Suspect]
     Active Substance: TRAMADOL
     Indication: Product used for unknown indication
     Route: 048
     Dates: start: 200910, end: 200911
  4. TRAMADOL [Suspect]
     Active Substance: TRAMADOL
     Dosage: 50 MG, TID
     Dates: start: 200909, end: 201011
  5. TRAMADOL [Suspect]
     Active Substance: TRAMADOL
     Route: 065
  6. TRAMADOL [Suspect]
     Active Substance: TRAMADOL
     Dosage: 400 MILLIGRAM, QD
     Route: 048
     Dates: start: 200904, end: 200909
  7. TRAMADOL [Suspect]
     Active Substance: TRAMADOL
     Dosage: 400 MILLIGRAM, QD
     Route: 048
     Dates: start: 200909, end: 200911
  8. TRAMADOL [Suspect]
     Active Substance: TRAMADOL
     Dosage: 450 MILLIGRAM, QD (150 MG, TID (50 MG, 3/DAY))
     Route: 048
     Dates: start: 200909, end: 200911
  9. CYCLIZINE [Suspect]
     Active Substance: CYCLIZINE
     Indication: Nausea
     Route: 048
  10. CYCLIZINE [Suspect]
     Active Substance: CYCLIZINE
     Indication: Vomiting
     Route: 048
  11. CYCLIZINE [Suspect]
     Active Substance: CYCLIZINE
     Route: 048
  12. CYCLIZINE [Suspect]
     Active Substance: CYCLIZINE
     Dosage: 100 MILLIGRAM, TID
     Route: 065
  13. CYCLIZINE [Suspect]
     Active Substance: CYCLIZINE
     Route: 065
  14. DOMPERIDONE [Suspect]
     Active Substance: DOMPERIDONE
     Indication: Product used for unknown indication
     Dosage: UP TO THREE TIMES A DAY
     Route: 048
  15. COCODAMOL [Suspect]
     Active Substance: ACETAMINOPHEN\CODEINE PHOSPHATE
     Indication: Product used for unknown indication
     Dosage: 8 DOSAGE FORM, DAILY, 30MG/500MG
     Route: 048
  16. COCODAMOL [Suspect]
     Active Substance: ACETAMINOPHEN\CODEINE PHOSPHATE
     Dosage: 8 DOSAGE FORM, DAILY, 30MG/500MG
     Route: 048
  17. COCODAMOL [Suspect]
     Active Substance: ACETAMINOPHEN\CODEINE PHOSPHATE
     Dosage: 32 DOSAGE FORM, QID, ZAPAIN
     Route: 048
  18. COCODAMOL [Suspect]
     Active Substance: ACETAMINOPHEN\CODEINE PHOSPHATE
     Dosage: 8 DOSAGE FORM, QID
     Route: 048
  19. BETAHISTINE [Suspect]
     Active Substance: BETAHISTINE
     Indication: Product used for unknown indication
     Dosage: 1X/DAY
     Route: 048
  20. AMITRIPTYLINE [Suspect]
     Active Substance: AMITRIPTYLINE
     Indication: Product used for unknown indication
     Route: 048
  21. AMITRIPTYLINE [Suspect]
     Active Substance: AMITRIPTYLINE
     Route: 048
  22. PRUCALOPRIDE [Suspect]
     Active Substance: PRUCALOPRIDE
     Indication: Product used for unknown indication
     Route: 048
  23. GABAPENTIN [Suspect]
     Active Substance: GABAPENTIN
     Indication: Product used for unknown indication
     Route: 048
  24. GABAPENTIN [Suspect]
     Active Substance: GABAPENTIN
     Route: 048
  25. GABAPENTIN [Suspect]
     Active Substance: GABAPENTIN
     Dosage: 900 MILLIGRAM, QID
     Route: 048
  26. METOCLOPRAMIDE [Suspect]
     Active Substance: METOCLOPRAMIDE
     Indication: Abdominal pain
     Dosage: FREQUENCY - IN 8 HOURS 10 MG, 3/DAY
  27. METOCLOPRAMIDE [Suspect]
     Active Substance: METOCLOPRAMIDE
     Indication: Vomiting
     Dates: start: 200907
  28. METOCLOPRAMIDE [Suspect]
     Active Substance: METOCLOPRAMIDE
  29. METOCLOPRAMIDE [Suspect]
     Active Substance: METOCLOPRAMIDE
     Route: 048
  30. AMITRIPTYLINE [Suspect]
     Active Substance: AMITRIPTYLINE
     Indication: Product used for unknown indication
     Route: 048
  31. ACETAMINOPHEN\CODEINE PHOSPHATE [Suspect]
     Active Substance: ACETAMINOPHEN\CODEINE PHOSPHATE
     Indication: Product used for unknown indication
     Dosage: 30MG/500MG (ONCE DAILY)?8 DOSAGE FORM, 1XDAY QD
     Route: 048
  32. ACETAMINOPHEN\CODEINE PHOSPHATE [Suspect]
     Active Substance: ACETAMINOPHEN\CODEINE PHOSPHATE
     Dosage: 8 DOSAGE FORM, QD,(3OMG/500MG) (CO-CODAMOL)
     Route: 048
  33. CODEINE [Suspect]
     Active Substance: CODEINE
     Indication: Product used for unknown indication
     Dosage: 32 DOSAGE FORM, QD, 30MG/500MG
     Route: 048
  34. IBUPROFEN [Concomitant]
     Active Substance: IBUPROFEN
     Indication: Abdominal pain
  35. OMEPRAZOLE [Concomitant]
     Active Substance: OMEPRAZOLE
     Indication: Dyspepsia
  36. SUMATRIPTAN [Concomitant]
     Active Substance: SUMATRIPTAN
     Indication: Migraine
  37. HYDROCORTISONE [Concomitant]
     Active Substance: HYDROCORTISONE
     Indication: Product used for unknown indication
     Route: 048
  38. HYDROCORTISONE [Concomitant]
     Active Substance: HYDROCORTISONE
     Route: 048
     Dates: start: 200910, end: 200911
  39. HYDROCORTISONE [Concomitant]
     Active Substance: HYDROCORTISONE
     Dates: start: 200904, end: 200909
  40. HYDROCORTISONE [Concomitant]
     Active Substance: HYDROCORTISONE
     Dosage: 150 MILLIGRAM, TID
     Route: 048
  41. LANSOPRAZOLE [Concomitant]
     Active Substance: LANSOPRAZOLE
     Indication: Product used for unknown indication
     Route: 048
  42. LANSOPRAZOLE [Concomitant]
     Active Substance: LANSOPRAZOLE
     Dosage: 30 MILLIGRAM, BID

REACTIONS (10)
  - Secondary adrenocortical insufficiency [Recovered/Resolved]
  - Adrenal insufficiency [Recovered/Resolved]
  - Hyperprolactinaemia [Recovered/Resolved]
  - Pituitary tumour benign [Recovering/Resolving]
  - Abdominal pain [Recovered/Resolved]
  - Lethargy [Recovered/Resolved]
  - Vision blurred [Unknown]
  - Dizziness [Recovered/Resolved]
  - Headache [Recovered/Resolved]
  - Vomiting [Recovered/Resolved]

NARRATIVE: CASE EVENT DATE: 20091101
